FAERS Safety Report 17294144 (Version 2)
Quarter: 2020Q4

REPORT INFORMATION
  Report Type: Report from Study
  Country: US (occurrence: US)
  Receive Date: 20200121
  Receipt Date: 20201217
  Transmission Date: 20210113
  Serious: No
  Sender: FDA-Public Use
  Company Number: US-SA-2020SA012150

PATIENT

DRUGS (4)
  1. DUPILUMAB [Suspect]
     Active Substance: DUPILUMAB
     Indication: DERMATITIS
     Dosage: 300 MG, QOW
     Route: 058
     Dates: start: 2019
  2. VITAMIN D NOS [Concomitant]
     Active Substance: VITAMIN D NOS
  3. GABAPENTIN. [Concomitant]
     Active Substance: GABAPENTIN
  4. DUPILUMAB [Suspect]
     Active Substance: DUPILUMAB
     Indication: DERMATITIS ATOPIC
     Dosage: 600 MG, 1X
     Route: 058

REACTIONS (2)
  - Product dose omission issue [Unknown]
  - Eczema [Unknown]

NARRATIVE: CASE EVENT DATE: 201912
